FAERS Safety Report 5203840-4 (Version None)
Quarter: 2007Q1

REPORT INFORMATION
  Report Type: 
  Country: None (occurrence: None)
  Receive Date: 20070108
  Receipt Date: 20070108
  Transmission Date: 20070707
  Serious: Yes (Hospitalization)
  Sender: FDA-Public Use
  Company Number: None

PATIENT
  Age: 80 Year
  Sex: Male
  Weight: 72.1219 kg

DRUGS (1)
  1. BCG 81 MG INTRAVESICALLY [Suspect]
     Indication: DRUG THERAPY
     Dosage: 81 MG X 6 INTRAVESICA
     Route: 043
     Dates: start: 20060717, end: 20060829

REACTIONS (6)
  - BLADDER SPASM [None]
  - CHILLS [None]
  - DRUG TOXICITY [None]
  - PAIN [None]
  - TREMOR [None]
  - URINARY RETENTION [None]
